FAERS Safety Report 4425303-6 (Version None)
Quarter: 2004Q3

REPORT INFORMATION
  Report Type: 
  Country: None (occurrence: None)
  Receive Date: 20040812
  Receipt Date: 20040812
  Transmission Date: 20050211
  Serious: Yes (Death)
  Sender: FDA-Public Use
  Company Number: None

PATIENT
  Age: 23 Year
  Sex: Female
  Weight: 53.5244 kg

DRUGS (2)
  1. PAXIL [Suspect]
     Indication: ANXIETY
     Dosage: ONCE A DAY
  2. PAXIL [Suspect]
     Indication: INSOMNIA
     Dosage: ONCE A DAY

REACTIONS (1)
  - INJURY ASPHYXIATION [None]
